FAERS Safety Report 9698994 (Version 2)
Quarter: 2014Q1

REPORT INFORMATION
  Report Type: Spontaneous
  Country: US (occurrence: None)
  Receive Date: 20131118
  Receipt Date: 20140113
  Transmission Date: 20141002
  Serious: Yes (Hospitalization)
  Sender: FDA-Public Use
  Company Number: 2013-US-0418

PATIENT
  Age: 13 Year
  Sex: Female
  Weight: 54.43 kg

DRUGS (10)
  1. SANCUSO 3.1 MG/24HR [Suspect]
     Indication: DRUG LEVEL
     Dosage: 3.1 MG/24 HR
     Route: 062
     Dates: start: 20130825, end: 20130830
  2. ATIVAN (LORAZEPAM) [Concomitant]
  3. BACTRIM DS, SEPTRA [Concomitant]
  4. CHERRY SYRUP WITH NYSTATIN (CHERRY SYRUP WITH NYSTATIN) [Concomitant]
  5. COLACE [Concomitant]
  6. KEPPRA (LEVETIRACETAM) [Concomitant]
  7. MAG-OX (MAGNESIUM OXIDE) [Concomitant]
  8. NOXAFIL (POSACONAZOLE) [Concomitant]
  9. ZOFRAN-ODT (ONDANSETRON) [Concomitant]
  10. ROXICODONE (OXYCODONE HYDROCHLORIDE) (TABLETS) [Concomitant]

REACTIONS (8)
  - Abdominal pain [None]
  - Febrile neutropenia [None]
  - Nausea [None]
  - Vomiting [None]
  - Renal cyst [None]
  - Dehydration [None]
  - Balance disorder [None]
  - Constipation [None]
